FAERS Safety Report 8843590 (Version 2)
Quarter: 2015Q2

REPORT INFORMATION
  Report Type: Report from Study
  Country: US (occurrence: US)
  Receive Date: 20121016
  Receipt Date: 20150623
  Transmission Date: 20150821
  Serious: Yes (Death)
  Sender: FDA-Public Use
  Company Number: US-ROCHE-1137162

PATIENT
  Sex: Male

DRUGS (1)
  1. XELODA [Suspect]
     Active Substance: CAPECITABINE
     Indication: HEAD AND NECK CANCER
     Route: 048

REACTIONS (2)
  - Malaise [Unknown]
  - Death [Fatal]
